FAERS Safety Report 10364695 (Version 2)
Quarter: 2014Q4

REPORT INFORMATION
  Report Type: Spontaneous
  Country: US (occurrence: US)
  Receive Date: 20140806
  Receipt Date: 20141001
  Transmission Date: 20150528
  Serious: Yes (Other)
  Sender: FDA-Public Use
  Company Number: US-BAYER-2014-113710

PATIENT
  Age: 74 Year
  Sex: Male
  Weight: 109 kg

DRUGS (15)
  1. PLAVIX [Concomitant]
     Active Substance: CLOPIDOGREL BISULFATE
     Dosage: 1 DF, QD
  2. ALBUTEROL. [Concomitant]
     Active Substance: ALBUTEROL
     Dosage: 4 DOSE, PRN
  3. CARDIZEM [Concomitant]
     Active Substance: DILTIAZEM HYDROCHLORIDE
     Dosage: 1 DF, QD
  4. SEREVENT [Concomitant]
     Active Substance: SALMETEROL XINAFOATE
     Dosage: 2 DOSE, QD
  5. ALEVE [Suspect]
     Active Substance: NAPROXEN SODIUM
     Indication: BACK PAIN
     Dosage: 2 DF, BID
     Route: 048
     Dates: start: 20140724, end: 20140726
  6. SOTALOL. [Concomitant]
     Active Substance: SOTALOL
     Dosage: 2 DF, QD
  7. ZETIA [Concomitant]
     Active Substance: EZETIMIBE
     Dosage: 1 DF, QD
  8. PULMICORT TURBUHALER [Concomitant]
     Active Substance: BUDESONIDE
     Dosage: 2 DOSE, QD
  9. ALEVE [Suspect]
     Active Substance: NAPROXEN SODIUM
     Indication: PAIN IN EXTREMITY
     Dosage: 2 DF, BID
     Route: 048
  10. ALEVE [Suspect]
     Active Substance: NAPROXEN SODIUM
     Indication: BACK PAIN
     Dosage: 5 DF, UNK
     Route: 048
  11. PREVACID [Concomitant]
     Active Substance: LANSOPRAZOLE
     Dosage: 1 DF, QD
  12. ASPIRIN. [Concomitant]
     Active Substance: ASPIRIN
     Dosage: 1 DF, QD
  13. SYNTHROID [Concomitant]
     Active Substance: LEVOTHYROXINE SODIUM
     Dosage: 1 DF, QD
  14. CRESTOR [Concomitant]
     Active Substance: ROSUVASTATIN CALCIUM
     Dosage: 1 DF, QD
  15. DIGOXIN. [Concomitant]
     Active Substance: DIGOXIN
     Dosage: 1 DF, QD

REACTIONS (2)
  - Arrhythmia [Recovered/Resolved]
  - Extra dose administered [None]

NARRATIVE: CASE EVENT DATE: 20140727
